FAERS Safety Report 9113133 (Version 4)
Quarter: 2013Q2

REPORT INFORMATION
  Report Type: Report from Study
  Country: US (occurrence: US)
  Receive Date: 20130211
  Receipt Date: 20130416
  Transmission Date: 20140414
  Serious: No
  Sender: FDA-Public Use
  Company Number: US-VERTEX PHARMACEUTICALS INC.-2013-001148

PATIENT
  Age: 58 Year
  Sex: Male
  Weight: 106 kg

DRUGS (9)
  1. VX-950 (TELAPREVIR) [Suspect]
     Indication: HEPATITIS C
     Dosage: 750 MG, TID
     Route: 048
     Dates: start: 20130109, end: 20130405
  2. COPEGUS [Suspect]
     Indication: HEPATITIS C
     Dosage: 3 PILLS AM, 2 PILLS PM
     Route: 048
     Dates: start: 20130109, end: 20130213
  3. COPEGUS [Suspect]
     Dosage: 2 PILLS IN AM / 1 PIL IN PM
     Route: 048
     Dates: start: 20130214
  4. PEGASYS [Suspect]
     Indication: HEPATITIS C
     Dosage: 180 ?G, QW
     Route: 058
     Dates: start: 20130109, end: 20130213
  5. PEGASYS [Suspect]
     Dosage: 90 ?G, QW
     Route: 058
     Dates: start: 20130214
  6. AMITRIPTYLINE [Concomitant]
     Indication: NEURALGIA
     Dosage: 10 MG, QD
     Route: 048
  7. FAMOTIDINE [Concomitant]
     Indication: GASTRIC ULCER
     Route: 048
  8. HYDROCHLOROTHIAZIDE [Concomitant]
     Indication: HYPERTENSION
     Dosage: UNK, QD
     Route: 048
  9. METOPROLOL [Concomitant]
     Indication: HYPERTENSION
     Dosage: UNK, QD
     Route: 048

REACTIONS (17)
  - White blood cell count decreased [Recovered/Resolved]
  - Mood swings [Not Recovered/Not Resolved]
  - Vision blurred [Not Recovered/Not Resolved]
  - Musculoskeletal discomfort [Not Recovered/Not Resolved]
  - Insomnia [Not Recovered/Not Resolved]
  - Dry skin [Not Recovered/Not Resolved]
  - Abdominal discomfort [Not Recovered/Not Resolved]
  - Decreased appetite [Not Recovered/Not Resolved]
  - Feeling abnormal [Not Recovered/Not Resolved]
  - Dry mouth [Not Recovered/Not Resolved]
  - Asthenia [Not Recovered/Not Resolved]
  - Fatigue [Not Recovered/Not Resolved]
  - Rash macular [Not Recovered/Not Resolved]
  - Red blood cell count decreased [Recovered/Resolved]
  - Platelet count decreased [Recovered/Resolved]
  - Pruritus [Not Recovered/Not Resolved]
  - Anorectal discomfort [Not Recovered/Not Resolved]
